FAERS Safety Report 4690296-3 (Version None)
Quarter: 2005Q2

REPORT INFORMATION
  Report Type: 
  Country: None (occurrence: None)
  Receive Date: 20050615
  Receipt Date: 20050531
  Transmission Date: 20051028
  Serious: No
  Sender: FDA-Public Use
  Company Number: IE-GLAXOSMITHKLINE-B0383383A

PATIENT
  Age: 66 Year
  Sex: Male

DRUGS (3)
  1. ALKERAN [Suspect]
     Route: 042
     Dates: start: 20050530, end: 20050530
  2. DEXAMETHASONE [Concomitant]
     Indication: DRUG USE FOR UNKNOWN INDICATION
  3. KYTRIL [Concomitant]
     Indication: DRUG USE FOR UNKNOWN INDICATION
     Route: 065

REACTIONS (1)
  - DYSPHEMIA [None]
